FAERS Safety Report 18285673 (Version 3)
Quarter: 2020Q4

REPORT INFORMATION
  Report Type: Report from Study
  Country: None (occurrence: AU)
  Receive Date: 20200919
  Receipt Date: 20201012
  Transmission Date: 20210113
  Serious: Yes (Hospitalization)
  Sender: FDA-Public Use
  Company Number: AU-ABBVIE-20K-008-3519026-00

PATIENT
  Age: 72 Year
  Sex: Male

DRUGS (3)
  1. DUODOPA [Suspect]
     Active Substance: CARBIDOPA\LEVODOPA
     Route: 050
  2. DUODOPA [Suspect]
     Active Substance: CARBIDOPA\LEVODOPA
     Indication: PARKINSON^S DISEASE
     Dosage: 24 HOURS
     Route: 050
     Dates: start: 20180306
  3. DUODOPA [Suspect]
     Active Substance: CARBIDOPA\LEVODOPA
     Route: 050

REACTIONS (10)
  - Enteritis [Recovering/Resolving]
  - Incorrect route of product administration [Unknown]
  - Abdominal infection [Not Recovered/Not Resolved]
  - Device alarm issue [Unknown]
  - Urinary tract disorder [Unknown]
  - Micturition urgency [Recovering/Resolving]
  - Device occlusion [Unknown]
  - Device occlusion [Unknown]
  - Nocturia [Unknown]
  - Hypertonic bladder [Unknown]

NARRATIVE: CASE EVENT DATE: 20200808
